FAERS Safety Report 21267399 (Version 1)
Quarter: 2022Q3

REPORT INFORMATION
  Report Type: Spontaneous
  Country: IT (occurrence: IT)
  Receive Date: 20220829
  Receipt Date: 20220829
  Transmission Date: 20221027
  Serious: Yes (Hospitalization)
  Sender: FDA-Public Use
  Company Number: None

PATIENT
  Age: 60 Year
  Sex: Male
  Weight: 58 kg

DRUGS (3)
  1. BRINTELLIX [Suspect]
     Active Substance: VORTIOXETINE HYDROBROMIDE
     Indication: Intentional overdose
     Dosage: 140 MILLIGRAM
     Route: 048
     Dates: start: 20220715, end: 20220715
  2. TRAZODONE [Suspect]
     Active Substance: TRAZODONE HYDROCHLORIDE
     Indication: Intentional overdose
     Dosage: 650 MILLIGRAM
     Route: 065
     Dates: start: 20220715, end: 20220715
  3. LYRICA [Suspect]
     Active Substance: PREGABALIN
     Indication: Intentional overdose
     Dosage: 375 MILLIGRAM
     Route: 048
     Dates: start: 20220715, end: 20220715

REACTIONS (3)
  - Suicide attempt [Recovered/Resolved]
  - Speech disorder [Not Recovered/Not Resolved]
  - Intentional overdose [Not Recovered/Not Resolved]

NARRATIVE: CASE EVENT DATE: 20220715
